FAERS Safety Report 21200322 (Version 1)
Quarter: 2022Q3

REPORT INFORMATION
  Report Type: Spontaneous
  Country: DE (occurrence: DE)
  Receive Date: 20220811
  Receipt Date: 20220811
  Transmission Date: 20221026
  Serious: Yes (Other)
  Sender: FDA-Public Use
  Company Number: DE-MYLANLABS-2022M1085512

PATIENT
  Age: 4 Year
  Sex: Female

DRUGS (9)
  1. ADALIMUMAB [Suspect]
     Active Substance: ADALIMUMAB
     Indication: Uveitis
     Dosage: 40 MILLIGRAM, BID
     Route: 058
  2. PREDNISOLONE [Suspect]
     Active Substance: PREDNISOLONE
     Indication: Uveitis
     Dosage: UNK, 5XD
     Route: 061
  3. PREDNISOLONE [Suspect]
     Active Substance: PREDNISOLONE
     Dosage: UNK, TID (3X/DAY)
     Route: 061
  4. PREDNISOLONE [Suspect]
     Active Substance: PREDNISOLONE
     Dosage: REDUCED TO {=1 TIMES /DAY
     Route: 061
  5. PREDNISOLONE [Suspect]
     Active Substance: PREDNISOLONE
     Dosage: PREDNISOLONE ACETATE }=2 TIMES /DAY;
     Route: 061
  6. TROPICAMIDE [Concomitant]
     Active Substance: TROPICAMIDE
     Indication: Uveitis
     Dosage: AT NIGHT
     Route: 065
  7. METHOTREXATE [Concomitant]
     Active Substance: METHOTREXATE
     Indication: Uveitis
     Dosage: 15 MILLIGRAM, QD
     Route: 048
  8. METHOTREXATE [Concomitant]
     Active Substance: METHOTREXATE
     Dosage: INITIALLY DISCONTINUED AND LATER RESTARTED DUE TO REACTIVATION OF UVEITIS
     Route: 048
  9. MITOMYCIN C [Concomitant]
     Active Substance: MITOMYCIN
     Indication: Drug therapy
     Dosage: UNK
     Route: 065

REACTIONS (2)
  - Drug ineffective [Unknown]
  - Disease recurrence [Unknown]
